FAERS Safety Report 9332335 (Version 3)
Quarter: 2013Q2

REPORT INFORMATION
  Report Type: Spontaneous
  Country: JP (occurrence: JP)
  Receive Date: 20130606
  Receipt Date: 20130617
  Transmission Date: 20140414
  Serious: Yes (Hospitalization)
  Sender: FDA-Public Use
  Company Number: JP-009507513-1306JPN000194

PATIENT
  Age: 61 Year
  Sex: Male

DRUGS (5)
  1. PEGINTRON [Suspect]
     Indication: CHRONIC HEPATITIS C
     Dosage: 1 MICROGRAM PER KILOGRAM, QW
     Route: 058
     Dates: start: 20130327, end: 20130515
  2. REBETOL [Suspect]
     Indication: CHRONIC HEPATITIS C
     Dosage: 400 MG, QD
     Route: 048
     Dates: start: 20130327, end: 20130518
  3. TELAVIC [Suspect]
     Indication: CHRONIC HEPATITIS C
     Dosage: 1500 MG, QD
     Route: 048
     Dates: start: 20130327, end: 20130518
  4. DERMOVATE [Concomitant]
     Dosage: 5 G, PRN PER DAY, FORMULATION:EXT
     Route: 051
     Dates: start: 20130515
  5. EKSALB [Concomitant]
     Dosage: 5 G, PRN PER DAY, FORMULATION:EXT
     Route: 051
     Dates: start: 20130515

REACTIONS (1)
  - Drug eruption [Recovering/Resolving]
